FAERS Safety Report 7627050-6 (Version None)
Quarter: 2011Q3

REPORT INFORMATION
  Report Type: 
  Country: None (occurrence: None)
  Receive Date: 20110714
  Receipt Date: 20110630
  Transmission Date: 20111222
  Serious: Yes (Death)
  Sender: FDA-Public Use
  Company Number: 970611

PATIENT
  Age: 8 Year

DRUGS (4)
  1. PROPOFOL [Suspect]
     Indication: INDUCTION OF ANAESTHESIA
  2. ISOFLURANE [Suspect]
     Indication: INDUCTION OF ANAESTHESIA
  3. NITRIC OXIDE [Suspect]
     Indication: MAINTENANCE OF ANAESTHESIA
  4. FENTANYL CITRATE [Suspect]
     Indication: INDUCTION OF ANAESTHESIA

REACTIONS (3)
  - PULMONARY ARTERIAL HYPERTENSION [None]
  - BRADYCARDIA [None]
  - PULSELESS ELECTRICAL ACTIVITY [None]
